FAERS Safety Report 19963721 (Version 2)
Quarter: 2021Q4

REPORT INFORMATION
  Report Type: Report from Study
  Country: CO (occurrence: None)
  Receive Date: 20211018
  Receipt Date: 20211119
  Transmission Date: 20220304
  Serious: Yes (Hospitalization)
  Sender: FDA-Public Use
  Company Number: CO-MERCK HEALTHCARE KGAA-9271820

PATIENT
  Age: 25 Year
  Sex: Female

DRUGS (2)
  1. REBIF [Suspect]
     Active Substance: INTERFERON BETA-1A
     Indication: Multiple sclerosis
     Route: 058
     Dates: start: 20210820
  2. REBIF [Suspect]
     Active Substance: INTERFERON BETA-1A
     Route: 058
     Dates: start: 20211101, end: 2021

REACTIONS (8)
  - Trismus [Recovering/Resolving]
  - Protrusion tongue [Recovering/Resolving]
  - Swollen tongue [Recovering/Resolving]
  - General physical health deterioration [Recovering/Resolving]
  - Multiple sclerosis relapse [Recovered/Resolved]
  - Pain [Unknown]
  - Malaise [Unknown]
  - Dizziness [Unknown]

NARRATIVE: CASE EVENT DATE: 20211001
